FAERS Safety Report 9169923 (Version 1)
Quarter: 2013Q1

REPORT INFORMATION
  Report Type: Spontaneous
  Country: US (occurrence: US)
  Receive Date: 20130319
  Receipt Date: 20130319
  Transmission Date: 20140127
  Serious: No
  Sender: FDA-Public Use
  Company Number: US-BIOGENIDEC-160516

PATIENT
  Age: 51 Year
  Sex: Female
  Weight: 63 kg

DRUGS (6)
  1. AVONEX [Suspect]
     Indication: MULTIPLE SCLEROSIS
     Route: 030
     Dates: start: 20010222
  2. AVONEX [Suspect]
     Indication: MULTIPLE SCLEROSIS
     Route: 030
     Dates: start: 20010201
  3. B COMPLEX VITAMIN [Concomitant]
     Indication: SUPPLEMENTATION THERAPY
  4. TYLENOL [Concomitant]
     Indication: ANALGESIC THERAPY
  5. VITAMIN E [Concomitant]
     Indication: FIBROCYSTIC BREAST DISEASE
     Dates: end: 200110
  6. PREMARIN [Concomitant]
     Indication: HORMONE REPLACEMENT THERAPY

REACTIONS (4)
  - Hypertension [Not Recovered/Not Resolved]
  - Cholecystitis [Recovered/Resolved]
  - Headache [Recovered/Resolved with Sequelae]
  - Influenza like illness [Recovered/Resolved with Sequelae]
